FAERS Safety Report 25571932 (Version 1)
Quarter: 2025Q3

REPORT INFORMATION
  Report Type: Spontaneous
  Country: US (occurrence: US)
  Receive Date: 20250717
  Receipt Date: 20250717
  Transmission Date: 20251021
  Serious: No
  Sender: TARO
  Company Number: US-TARO PHARMACEUTICALS USA INC.-2024TAR02163

PATIENT

DRUGS (1)
  1. BETAMETHASONE VALERATE [Suspect]
     Active Substance: BETAMETHASONE VALERATE
     Indication: Rash
     Route: 061
     Dates: start: 20241023

REACTIONS (2)
  - Product dose omission issue [Unknown]
  - Product container issue [Unknown]

NARRATIVE: CASE EVENT DATE: 20241024
